FAERS Safety Report 26118264 (Version 2)
Quarter: 2025Q4

REPORT INFORMATION
  Report Type: Spontaneous
  Country: LB (occurrence: LB)
  Receive Date: 20251203
  Receipt Date: 20251208
  Transmission Date: 20260118
  Serious: Yes (Death, Life-Threatening, Hospitalization, Other)
  Sender: BRISTOL-MYERS SQUIBB COMPANY
  Company Number: LB-BRISTOL-MYERS SQUIBB COMPANY-2025-162155

PATIENT
  Age: 67 Year
  Sex: Female

DRUGS (3)
  1. IPILIMUMAB [Suspect]
     Active Substance: IPILIMUMAB
     Indication: Anaplastic thyroid cancer
  2. NIVOLUMAB [Suspect]
     Active Substance: NIVOLUMAB
     Indication: Anaplastic thyroid cancer
  3. APIXABAN [Concomitant]
     Active Substance: APIXABAN
     Indication: Jugular vein thrombosis

REACTIONS (3)
  - Vascular pseudoaneurysm [Fatal]
  - Immune-mediated vasculitis [Fatal]
  - Off label use [Unknown]
